FAERS Safety Report 7499498-4 (Version None)
Quarter: 2011Q2

REPORT INFORMATION
  Report Type: 
  Country: None (occurrence: None)
  Receive Date: 20110524
  Receipt Date: 20110518
  Transmission Date: 20111010
  Serious: Yes (Death, Hospitalization, Other)
  Sender: FDA-Public Use
  Company Number: PHEH2008US11042

PATIENT
  Sex: Male
  Weight: 80.726 kg

DRUGS (51)
  1. DEXAMETHASONE [Concomitant]
     Dosage: 40 MG, QW
  2. WARFARIN SODIUM [Concomitant]
     Dosage: 1 MG, UNK
     Dates: start: 20030101
  3. VINCRISTINE [Concomitant]
     Indication: MULTIPLE MYELOMA
  4. ZOLEDRONIC ACID [Concomitant]
  5. REVLIMID [Concomitant]
  6. SYNTHROID [Concomitant]
     Dosage: 0.75 MG, UNK
     Dates: start: 20030101
  7. WELCHOL [Concomitant]
  8. BACTRIM [Concomitant]
  9. THALIDOMIDE [Concomitant]
     Dosage: 3 MG, QD
  10. NEXIUM [Concomitant]
     Dosage: 40 MG, UNK
     Dates: start: 20030101
  11. NORCO [Concomitant]
  12. COMPAZINE [Concomitant]
  13. DEXAMETHASONE [Concomitant]
  14. ASCORBIC ACID [Concomitant]
  15. COUMADIN [Concomitant]
  16. PYRIDOXINE [Concomitant]
  17. STEROIDS NOS [Concomitant]
  18. DEXAMETHASONE [Concomitant]
     Dosage: 4 MG, UNK
     Dates: start: 20030101
  19. FLUCONAZOLE [Concomitant]
  20. MULTI-VIT [Concomitant]
  21. BISACODYL [Concomitant]
  22. DIPHENHYDRAMINE HCL [Concomitant]
  23. STOOL SOFTENER [Concomitant]
  24. FENTANYL [Concomitant]
  25. NEUTRA-PHOS [Concomitant]
  26. OXYCONTIN [Concomitant]
  27. GRANISETRON HCL [Concomitant]
  28. ZOMETA [Suspect]
     Indication: MULTIPLE MYELOMA
     Dosage: 4 MG, QMO
     Route: 042
     Dates: start: 20030101, end: 20060301
  29. COUMADIN [Concomitant]
  30. CIPRO [Concomitant]
     Dosage: 500 MG, UNK
     Dates: start: 19970101
  31. RED BLOOD CELLS [Concomitant]
  32. VITAMIN B6 [Concomitant]
  33. VITAMIN B-12 [Concomitant]
  34. VICODIN [Concomitant]
  35. AMOXICILLIN [Concomitant]
     Dosage: 500 MG, UNK
     Dates: start: 20060101
  36. OXYTOCIN [Concomitant]
  37. DURAGESIC-100 [Concomitant]
  38. FLUCONAZOLE [Concomitant]
  39. GARLIC [Concomitant]
  40. ACETAMINOPHEN [Concomitant]
  41. FOLIC ACID [Concomitant]
  42. PAMIDRONATE DISODIUM [Concomitant]
  43. AREDIA [Suspect]
  44. DECADRON [Concomitant]
     Dosage: 4 MG, QD
  45. AMOXICILLIN [Concomitant]
     Dosage: 500 MG, TID
  46. REVLIMID [Concomitant]
  47. CHEMOTHERAPEUTICS NOS [Concomitant]
     Indication: NEOPLASM MALIGNANT
  48. ADRIAMYCIN PFS [Concomitant]
     Indication: MULTIPLE MYELOMA
  49. AMBROTOSE [Concomitant]
  50. ALEVE [Concomitant]
  51. ANTINEOPLASTIC AGENTS [Concomitant]

REACTIONS (47)
  - TOOTHACHE [None]
  - BONE SARCOMA [None]
  - OSTEOARTHRITIS [None]
  - OSTEOPENIA [None]
  - DEHYDRATION [None]
  - SCAPULA FRACTURE [None]
  - MULTIPLE MYELOMA [None]
  - HIATUS HERNIA [None]
  - HYPERCALCAEMIA [None]
  - ALTERED STATE OF CONSCIOUSNESS [None]
  - CARDIO-RESPIRATORY ARREST [None]
  - TOOTH DISORDER [None]
  - BARRETT'S OESOPHAGUS [None]
  - GOITRE [None]
  - SCOLIOSIS [None]
  - FATIGUE [None]
  - BACK PAIN [None]
  - BONE LESION [None]
  - NODULE [None]
  - MASS [None]
  - DYSPNOEA [None]
  - IRRITABILITY [None]
  - RASH MACULO-PAPULAR [None]
  - BLOOD PHOSPHORUS DECREASED [None]
  - ANAEMIA [None]
  - ATELECTASIS [None]
  - GAIT DISTURBANCE [None]
  - CHEST PAIN [None]
  - OEDEMA PERIPHERAL [None]
  - SPINAL OSTEOARTHRITIS [None]
  - INTERVERTEBRAL DISC PROTRUSION [None]
  - MENTAL STATUS CHANGES [None]
  - EXPOSED BONE IN JAW [None]
  - PANCREATITIS [None]
  - OESOPHAGEAL ULCER [None]
  - NEUROPATHY PERIPHERAL [None]
  - INTERVERTEBRAL DISC DEGENERATION [None]
  - OESOPHAGEAL HYPOMOTILITY [None]
  - CONJUNCTIVAL HAEMORRHAGE [None]
  - RASH PRURITIC [None]
  - MOBILITY DECREASED [None]
  - NEOPLASM MALIGNANT [None]
  - ANXIETY [None]
  - ERYTHEMA NODOSUM [None]
  - BLOOD DISORDER [None]
  - ASTHENIA [None]
  - WEIGHT DECREASED [None]
